FAERS Safety Report 18007589 (Version 1)
Quarter: 2020Q3

REPORT INFORMATION
  Report Type: Spontaneous
  Country: US (occurrence: US)
  Receive Date: 20200710
  Receipt Date: 20200710
  Transmission Date: 20201103
  Serious: No
  Sender: FDA-Public Use
  Company Number: US-IGSA-BIG0010589

PATIENT
  Age: 28 Year
  Sex: Female
  Weight: 128 kg

DRUGS (3)
  1. GAMUNEX?C [Suspect]
     Active Substance: HUMAN IMMUNOGLOBULIN G
     Indication: PRIMARY IMMUNODEFICIENCY SYNDROME
     Dosage: 13 GRAM, Q.WK.
     Route: 058
     Dates: start: 2018, end: 20190716
  2. GAMUNEX?C [Suspect]
     Active Substance: HUMAN IMMUNOGLOBULIN G
     Dosage: 25 GRAM, Q.4WK.
     Route: 042
     Dates: start: 20200623, end: 20200623
  3. GAMUNEX?C [Suspect]
     Active Substance: HUMAN IMMUNOGLOBULIN G
     Dosage: 35 GRAM, Q.4WK.
     Route: 042
     Dates: start: 20200107

REACTIONS (4)
  - Infusion site urticaria [Recovered/Resolved]
  - Injection site erythema [Recovered/Resolved]
  - Intentional underdose [Recovered/Resolved]
  - Abdominal mass [Recovered/Resolved]

NARRATIVE: CASE EVENT DATE: 201904
